FAERS Safety Report 18230126 (Version 2)
Quarter: 2020Q3

REPORT INFORMATION
  Report Type: Report from Study
  Country: GT (occurrence: GT)
  Receive Date: 20200904
  Receipt Date: 20200922
  Transmission Date: 20201103
  Serious: Yes (Death, Hospitalization)
  Sender: FDA-Public Use
  Company Number: GT-BIOGEN-2020BI00918838

PATIENT
  Age: 65 Year
  Sex: Female
  Weight: 51 kg

DRUGS (1)
  1. TYSABRI [Suspect]
     Active Substance: NATALIZUMAB
     Indication: RELAPSING MULTIPLE SCLEROSIS
     Dosage: INFUSED OVER 1 HOUR
     Route: 042
     Dates: start: 20190703, end: 20200619

REACTIONS (6)
  - Pneumonia [Unknown]
  - Disorientation [Unknown]
  - Depression [Unknown]
  - Multiple sclerosis relapse [Unknown]
  - Death [Fatal]
  - Weight decreased [Unknown]

NARRATIVE: CASE EVENT DATE: 20200818
